FAERS Safety Report 6544028-4 (Version None)
Quarter: 2010Q1

REPORT INFORMATION
  Report Type: 
  Country: None (occurrence: None)
  Receive Date: 20100120
  Receipt Date: 20100118
  Transmission Date: 20100710
  Serious: Yes (Death)
  Sender: FDA-Public Use
  Company Number: GB-PFIZER INC-2009215856

PATIENT
  Age: 65 Year
  Sex: Male

DRUGS (1)
  1. CHAMPIX [Suspect]
     Dosage: UNK
     Route: 048
     Dates: start: 20090201, end: 20090414

REACTIONS (3)
  - DIABETES MELLITUS [None]
  - PNEUMONIA [None]
  - SEPSIS [None]
